FAERS Safety Report 16898976 (Version 1)
Quarter: 2019Q4

REPORT INFORMATION
  Report Type: Spontaneous
  Country: RO (occurrence: RO)
  Receive Date: 20191009
  Receipt Date: 20191009
  Transmission Date: 20200122
  Serious: Yes (Death, Other)
  Sender: FDA-Public Use
  Company Number: RO-PFIZER INC-2019329757

PATIENT
  Age: 64 Year
  Sex: Male
  Weight: 69 kg

DRUGS (7)
  1. TRIMETAZIDINA [TRIMETAZIDINE] [Concomitant]
     Dosage: UNK
  2. TOLURA [Concomitant]
     Dosage: UNK
  3. NIFEDIPIN [Concomitant]
     Active Substance: NIFEDIPINE
     Dosage: UNK
  4. ATORIS [Concomitant]
     Active Substance: ATORVASTATIN CALCIUM
     Dosage: UNK
  5. NEBIVOLOL. [Concomitant]
     Active Substance: NEBIVOLOL
     Dosage: UNK
  6. SUTENT [Suspect]
     Active Substance: SUNITINIB MALATE
     Indication: METASTATIC RENAL CELL CARCINOMA
     Dosage: 50 MG, CYCLIC (28 DAYS ON TREATMENT WITH 14 DAYS OF PAUSE)
     Route: 048
     Dates: start: 20180708, end: 20190717
  7. CONVULEX [VALPROIC ACID] [Concomitant]
     Active Substance: VALPROIC ACID
     Dosage: UNK

REACTIONS (2)
  - Death [Fatal]
  - Neoplasm progression [Recovering/Resolving]

NARRATIVE: CASE EVENT DATE: 20190711
